FAERS Safety Report 8971315 (Version 1)
Quarter: 2012Q4

REPORT INFORMATION
  Report Type: 
  Country: CA (occurrence: CA)
  Receive Date: 20121218
  Receipt Date: 20121218
  Transmission Date: 20130627
  Serious: Yes (Hospitalization, Other)
  Sender: FDA-Public Use
  Company Number: CA-AMGEN-CANSP2012076813

PATIENT
  Age: 66 Year
  Sex: Male

DRUGS (10)
  1. ENBREL [Suspect]
     Indication: PSORIASIS
     Dosage: 50 mg, 2 times/wk
     Route: 058
     Dates: start: 201206
  2. LYDERM                             /00280401/ [Concomitant]
     Dosage: UNK
     Route: 061
  3. TEMAZEPAM [Concomitant]
     Dosage: UNK
     Route: 048
  4. OXYCOCET [Concomitant]
     Dosage: UNK
     Route: 048
  5. SIMVASTATIN [Concomitant]
     Dosage: UNK
     Route: 048
  6. ZYLOPRIM [Concomitant]
     Dosage: UNK
     Route: 048
  7. METFORMIN [Concomitant]
     Dosage: UNK
     Route: 048
  8. DOVOBET [Concomitant]
     Dosage: UNK
     Route: 061
  9. AMLODIPINE [Concomitant]
     Dosage: UNK
     Route: 048
  10. GLYBURIDE [Concomitant]
     Dosage: UNK
     Route: 048

REACTIONS (4)
  - Shoulder operation [Recovered/Resolved]
  - Calculus bladder [Recovered/Resolved]
  - Infection [Recovered/Resolved]
  - Urinary tract infection [Recovered/Resolved]
